FAERS Safety Report 4747054-0 (Version None)
Quarter: 2005Q3

REPORT INFORMATION
  Report Type: 
  Country: None (occurrence: None)
  Receive Date: 20050815
  Receipt Date: 20050802
  Transmission Date: 20060218
  Serious: Yes (Hospitalization, Other)
  Sender: FDA-Public Use
  Company Number: USA0508104442

PATIENT
  Age: 64 Year
  Sex: Female

DRUGS (1)
  1. HUMALOG MIX 75/25 [Suspect]
     Indication: DIABETES MELLITUS
     Dates: start: 20020101

REACTIONS (12)
  - ABASIA [None]
  - CYSTITIS [None]
  - FALL [None]
  - INJECTION SITE PAIN [None]
  - LEUKAEMIA [None]
  - MYOCARDIAL INFARCTION [None]
  - PAIN [None]
  - PHARMACEUTICAL PRODUCT COMPLAINT [None]
  - RASH ERYTHEMATOUS [None]
  - RASH PRURITIC [None]
  - SUTURE RELATED COMPLICATION [None]
  - SWELLING FACE [None]
